FAERS Safety Report 7544454-0 (Version None)
Quarter: 2011Q2

REPORT INFORMATION
  Report Type: 
  Country: None (occurrence: None)
  Receive Date: 20110613
  Receipt Date: 20110530
  Transmission Date: 20111010
  Serious: Yes (Hospitalization)
  Sender: FDA-Public Use
  Company Number: AT-ABBOTT-11P-009-0731756-00

PATIENT
  Age: 82 Year
  Sex: Male

DRUGS (1)
  1. LEUPROLIDE ACETATE [Suspect]
     Indication: PROSTATE CANCER
     Route: 058
     Dates: start: 20091101

REACTIONS (7)
  - OSTEOPOROSIS [None]
  - CEREBROVASCULAR ACCIDENT [None]
  - HIP ARTHROPLASTY [None]
  - RENAL FAILURE [None]
  - ANAEMIA [None]
  - URINARY TRACT INFECTION [None]
  - GOUT [None]
